FAERS Safety Report 10351600 (Version 1)
Quarter: 2014Q3

REPORT INFORMATION
  Report Type: Spontaneous
  Country: US (occurrence: US)
  Receive Date: 20140730
  Receipt Date: 20140730
  Transmission Date: 20150326
  Serious: Yes (Life-Threatening, Hospitalization, Disabling, Other)
  Sender: FDA-Public Use
  Company Number: US-BRISTOL-MYERS SQUIBB COMPANY-21218540

PATIENT
  Age: 65 Year
  Sex: Female

DRUGS (12)
  1. VITAMIN D [Concomitant]
     Active Substance: CHOLECALCIFEROL
  2. CARDIZEM [Concomitant]
     Active Substance: DILTIAZEM HYDROCHLORIDE
  3. SYMBICORT [Concomitant]
     Active Substance: BUDESONIDE\FORMOTEROL FUMARATE DIHYDRATE
  4. SINGULAIR [Concomitant]
     Active Substance: MONTELUKAST SODIUM
  5. POTASSIUM [Concomitant]
     Active Substance: POTASSIUM
  6. METAMUCIL [Concomitant]
     Active Substance: PLANTAGO SEED
  7. ENALAPRIL [Concomitant]
     Active Substance: ENALAPRIL
  8. LASIX [Concomitant]
     Active Substance: FUROSEMIDE
  9. HYDROCHLOROTHIAZIDE. [Concomitant]
     Active Substance: HYDROCHLOROTHIAZIDE
  10. CLARITIN-D 12 HOUR [Concomitant]
     Active Substance: LORATADINE\PSEUDOEPHEDRINE SULFATE
  11. SPRYCEL [Suspect]
     Active Substance: DASATINIB
     Indication: CHRONIC MYELOID LEUKAEMIA
     Route: 048
     Dates: start: 201302
  12. CRESTOR [Concomitant]
     Active Substance: ROSUVASTATIN CALCIUM

REACTIONS (8)
  - Pneumonia [Recovering/Resolving]
  - Hypercalcaemia [Recovering/Resolving]
  - Asthma [Recovering/Resolving]
  - Pleural effusion [Recovering/Resolving]
  - Rib fracture [Unknown]
  - Cardiomegaly [Unknown]
  - Middle ear effusion [Unknown]
  - Rash [Unknown]

NARRATIVE: CASE EVENT DATE: 2013
